FAERS Safety Report 12937202 (Version 2)
Quarter: 2016Q4

REPORT INFORMATION
  Report Type: Spontaneous
  Country: US (occurrence: US)
  Receive Date: 20161114
  Receipt Date: 20161206
  Transmission Date: 20170207
  Serious: No
  Sender: FDA-Public Use
  Company Number: US-PFIZER INC-2016523507

PATIENT
  Age: 48 Year
  Sex: Male

DRUGS (8)
  1. LYRICA [Suspect]
     Active Substance: PREGABALIN
     Indication: NEURALGIA
     Dosage: 200 MG, 1X/DAY (ONCE A DAY AT NIGHT)
  2. XANAX [Concomitant]
     Active Substance: ALPRAZOLAM
     Dosage: 0.25 MG, AS NEEDED
     Dates: start: 201607
  3. BENICAR HCT [Concomitant]
     Active Substance: HYDROCHLOROTHIAZIDE\OLMESARTAN MEDOXOMIL
     Dosage: UNK, 1X/DAY (HYDROCHLOROTHIAZIDE 12.5 MG, OLMESARTAN MEDOXOMIL 20 MG)
     Dates: start: 201607
  4. LYRICA [Suspect]
     Active Substance: PREGABALIN
     Indication: BACK PAIN
  5. NORTRIPTYLINE HCL [Concomitant]
     Active Substance: NORTRIPTYLINE HYDROCHLORIDE
     Dosage: 20 MG, 1X/DAY
     Dates: start: 201607
  6. DEXILANT [Concomitant]
     Active Substance: DEXLANSOPRAZOLE
     Dosage: 60 MG, 1X/DAY
     Dates: start: 201609
  7. METOPROLOL TARTRATE. [Concomitant]
     Active Substance: METOPROLOL TARTRATE
     Dosage: 25 MG, 2X/DAY
     Dates: start: 201607
  8. MELOXICAM. [Concomitant]
     Active Substance: MELOXICAM
     Dosage: 15 MG, AS NEEDED (1XDAY AS NEEDED)

REACTIONS (1)
  - Bronchitis [Not Recovered/Not Resolved]

NARRATIVE: CASE EVENT DATE: 201610
